FAERS Safety Report 18972742 (Version 1)
Quarter: 2021Q1

REPORT INFORMATION
  Report Type: Spontaneous
  Country: US (occurrence: US)
  Receive Date: 20210305
  Receipt Date: 20210305
  Transmission Date: 20210420
  Serious: No
  Sender: FDA-Public Use
  Company Number: US-CELGENEUS-USA-20210300291

PATIENT
  Sex: Male
  Weight: 154.36 kg

DRUGS (13)
  1. HYDROCORTISONE. [Concomitant]
     Active Substance: HYDROCORTISONE
     Indication: GLUCOCORTICOIDS NORMAL
     Route: 065
  2. FERROUSUL [Concomitant]
     Indication: SUPPLEMENTATION THERAPY
     Route: 065
  3. LEVOTHYROXINE SODIUM. [Concomitant]
     Active Substance: LEVOTHYROXINE SODIUM
     Indication: HYPOTHYROIDISM
     Route: 065
  4. BACTRIM DS [Concomitant]
     Active Substance: SULFAMETHOXAZOLE\TRIMETHOPRIM
     Indication: ANTIBIOTIC THERAPY
     Route: 065
  5. REVLIMID [Suspect]
     Active Substance: LENALIDOMIDE
     Indication: CHRONIC MYELOMONOCYTIC LEUKAEMIA
     Dosage: 25 MILLIGRAM
     Route: 048
     Dates: start: 20210208
  6. OMEPRAZOLE. [Concomitant]
     Active Substance: OMEPRAZOLE
     Indication: GASTRITIS PROPHYLAXIS
     Route: 065
  7. OFLOXACIN. [Concomitant]
     Active Substance: OFLOXACIN
     Indication: ANTIBIOTIC THERAPY
     Route: 065
  8. DEXAMETHASONE. [Concomitant]
     Active Substance: DEXAMETHASONE
     Indication: CHRONIC MYELOMONOCYTIC LEUKAEMIA
     Route: 065
  9. ASPIRIN. [Concomitant]
     Active Substance: ASPIRIN
     Indication: PROPHYLAXIS
     Route: 065
  10. VALACYCLOVIR [Concomitant]
     Active Substance: VALACYCLOVIR HYDROCHLORIDE
     Indication: PROPHYLAXIS
     Route: 065
  11. REVLIMID [Suspect]
     Active Substance: LENALIDOMIDE
     Indication: PLASMA CELL MYELOMA
     Dosage: 25 MILLIGRAM
     Route: 048
     Dates: start: 2021
  12. PERCOCET [Concomitant]
     Active Substance: ACETAMINOPHEN\OXYCODONE HYDROCHLORIDE
     Indication: PAIN
     Route: 065
  13. PROCHLORPERAZINE MALEATE. [Concomitant]
     Active Substance: PROCHLORPERAZINE MALEATE
     Indication: ANTIEMETIC SUPPORTIVE CARE
     Route: 065

REACTIONS (1)
  - Rash [Recovering/Resolving]

NARRATIVE: CASE EVENT DATE: 2021
